FAERS Safety Report 12391699 (Version 7)
Quarter: 2018Q4

REPORT INFORMATION
  Report Type: Spontaneous
  Country: JP (occurrence: JP)
  Receive Date: 20160522
  Receipt Date: 20181019
  Transmission Date: 20190204
  Serious: Yes (Death, Life-Threatening, Hospitalization)
  Sender: FDA-Public Use
  Company Number: PHJP2016JP012733

PATIENT
  Age: 56 Year
  Sex: Female
  Weight: 85.9 kg

DRUGS (29)
  1. COSENTYX [Suspect]
     Active Substance: SECUKINUMAB
     Indication: PUSTULAR PSORIASIS
     Dosage: 300 MG, QW
     Route: 058
     Dates: start: 20160204
  2. PREMINENT [Concomitant]
     Active Substance: HYDROCHLOROTHIAZIDE\LOSARTAN POTASSIUM
     Indication: HYPERTENSION
     Dosage: 1DF(LOSARTAN POTASSIUM 100MG+HYDROCHLOROTHIAZIDE 12.5MG), QD
     Route: 048
     Dates: start: 20150514
  3. CALBLOCK [Concomitant]
     Active Substance: AZELNIDIPINE
     Indication: HYPERTENSION
     Dosage: 16 MG, QD
     Route: 048
     Dates: start: 20150514
  4. CUBICIN [Concomitant]
     Active Substance: DAPTOMYCIN
     Indication: PRODUCT USED FOR UNKNOWN INDICATION
     Dosage: 350 MG, UNK
     Route: 041
     Dates: start: 20160607
  5. ALBUMIN [Concomitant]
     Active Substance: ALBUMIN HUMAN
     Indication: PRODUCT USED FOR UNKNOWN INDICATION
     Dosage: 100 ML, UNK
     Route: 041
     Dates: start: 20160608
  6. COSENTYX [Suspect]
     Active Substance: SECUKINUMAB
     Dosage: 300 MG, QW
     Route: 058
     Dates: start: 20160212
  7. COSENTYX [Suspect]
     Active Substance: SECUKINUMAB
     Dosage: 300 MG, QMO
     Route: 058
     Dates: start: 20160331
  8. TIGASON                            /02207501/ [Concomitant]
     Indication: PUSTULAR PSORIASIS
     Dosage: 20 MG, BID
     Route: 048
     Dates: start: 20110606
  9. ALLELOCK [Concomitant]
     Active Substance: OLOPATADINE HYDROCHLORIDE
     Indication: PUSTULAR PSORIASIS
     Dosage: 5 MG, BID
     Route: 048
     Dates: start: 20100427
  10. PARIET [Concomitant]
     Active Substance: RABEPRAZOLE SODIUM
     Indication: GASTROOESOPHAGEAL REFLUX DISEASE
     Dosage: 10 MG, QD
     Route: 048
     Dates: start: 20110611
  11. THYRADIN S [Concomitant]
     Active Substance: LEVOTHYROXINE SODIUM
     Indication: HYPOTHYROIDISM
     Dosage: 50 UG, QD
     Route: 048
     Dates: start: 20100609
  12. ZETIA [Concomitant]
     Active Substance: EZETIMIBE
     Indication: HYPERLIPIDAEMIA
     Dosage: 10 MG, QD
     Route: 048
     Dates: start: 20130620
  13. B-D GLUCOSE [Concomitant]
     Indication: PRODUCT USED FOR UNKNOWN INDICATION
     Dosage: 20 ML, UNK
     Route: 041
     Dates: start: 20160607
  14. CRAVIT [Concomitant]
     Active Substance: LEVOFLOXACIN
     Indication: PRODUCT USED FOR UNKNOWN INDICATION
     Dosage: 500 MG, UNK
     Route: 041
     Dates: start: 20160607
  15. TAKEPRON [Concomitant]
     Active Substance: LANSOPRAZOLE
     Indication: PRODUCT USED FOR UNKNOWN INDICATION
     Dosage: 60 MG, UNK
     Route: 041
     Dates: start: 20160608
  16. COSENTYX [Suspect]
     Active Substance: SECUKINUMAB
     Dosage: 300 MG, QW
     Route: 058
     Dates: start: 20160218
  17. COSENTYX [Suspect]
     Active Substance: SECUKINUMAB
     Dosage: 300 MG, QW
     Route: 058
     Dates: start: 20160225
  18. RINDERON V [Suspect]
     Active Substance: BETAMETHASONE VALERATE
     Indication: PUSTULAR PSORIASIS
     Route: 061
  19. ZINC OXIDE OINTMENT [Concomitant]
     Indication: PUSTULAR PSORIASIS
     Dosage: UNK UNK, QD
     Route: 061
  20. COSENTYX [Suspect]
     Active Substance: SECUKINUMAB
     Dosage: 300 MG, QMO
     Route: 058
     Dates: start: 20160428
  21. RINDERON V [Suspect]
     Active Substance: BETAMETHASONE VALERATE
     Dosage: UNK, QD
     Route: 061
  22. ADOAIR [Suspect]
     Active Substance: FLUTICASONE PROPIONATE\SALMETEROL XINAFOATE
     Indication: ASTHMA
     Dosage: 500 UG, BID
     Route: 055
     Dates: start: 20110427
  23. LOXONIN [Concomitant]
     Active Substance: LOXOPROFEN SODIUM
     Indication: PSORIATIC ARTHROPATHY
     Dosage: 60 MG, QD
     Route: 048
     Dates: start: 20100427
  24. HYDROCORTISONE. [Concomitant]
     Active Substance: HYDROCORTISONE
     Dosage: 200 MG, UNK
     Route: 041
     Dates: start: 20160608
  25. HYDROCORTISONE. [Concomitant]
     Active Substance: HYDROCORTISONE
     Indication: PRODUCT USED FOR UNKNOWN INDICATION
     Dosage: 50 MG, UNK
     Route: 041
     Dates: start: 20160607
  26. B-D GLUCOSE [Concomitant]
     Dosage: 20 ML, UNK
     Route: 041
     Dates: start: 20160608
  27. TRAMCET [Concomitant]
     Active Substance: ACETAMINOPHEN\TRAMADOL
     Indication: PSORIATIC ARTHROPATHY
     Dosage: 1 DF, QID
     Route: 048
     Dates: start: 20150326
  28. ACELIO [Concomitant]
     Active Substance: ACETAMINOPHEN
     Indication: PRODUCT USED FOR UNKNOWN INDICATION
     Dosage: 2000 MG, UNK
     Route: 042
     Dates: start: 20160606
  29. VITAMEDIN                          /00176001/ [Concomitant]
     Indication: PRODUCT USED FOR UNKNOWN INDICATION
     Dosage: 1 DF, UNK
     Route: 041
     Dates: start: 20160607

REACTIONS (25)
  - Staphylococcus test positive [Fatal]
  - Enterococcus test positive [Fatal]
  - Proteus test positive [Fatal]
  - Decreased appetite [Recovered/Resolved]
  - Rash [Unknown]
  - Pseudomonas test positive [Fatal]
  - Malaise [Fatal]
  - Staphylococcus test [Fatal]
  - Septic shock [Fatal]
  - ACTH stimulation test abnormal [Unknown]
  - Inappropriate schedule of product administration [Unknown]
  - Pyrexia [Fatal]
  - Hypotension [Fatal]
  - Psoriasis [Not Recovered/Not Resolved]
  - Pain [Unknown]
  - Escherichia test positive [Fatal]
  - Adrenal insufficiency [Not Recovered/Not Resolved]
  - Cortisol decreased [Unknown]
  - Constipation [Unknown]
  - Sepsis [Fatal]
  - Klebsiella test positive [Fatal]
  - Hypoglycaemia [Fatal]
  - Hypovitaminosis [Recovered/Resolved]
  - Feeding disorder [Unknown]
  - Decreased appetite [Recovered/Resolved]

NARRATIVE: CASE EVENT DATE: 20160313
